FAERS Safety Report 10256764 (Version 1)
Quarter: 2014Q2

REPORT INFORMATION
  Report Type: Spontaneous
  Country: IT (occurrence: IT)
  Receive Date: 20140624
  Receipt Date: 20140624
  Transmission Date: 20141212
  Serious: Yes (Hospitalization)
  Sender: FDA-Public Use
  Company Number: IT-MERCK-1406ITA009832

PATIENT
  Age: 50 Year
  Sex: Male

DRUGS (3)
  1. PEGINTRON [Suspect]
     Indication: CHRONIC HEPATITIS C
     Dosage: WEEKLY
     Route: 058
     Dates: start: 20130607, end: 20140509
  2. VICTRELIS [Concomitant]
     Dosage: 2.4 G, UNK
     Route: 048
     Dates: start: 20130609, end: 20140509
  3. COPEGUS [Concomitant]
     Indication: CHRONIC HEPATITIS C
     Dosage: 1200MG
     Route: 048
     Dates: start: 20130607, end: 20140509

REACTIONS (2)
  - Cellulitis [Recovering/Resolving]
  - Pyrexia [Recovering/Resolving]
